FAERS Safety Report 7632801 (Version 3)
Quarter: 2013Q4

REPORT INFORMATION
  Report Type: Spontaneous
  Country: US (occurrence: US)
  Receive Date: 20101018
  Receipt Date: 20131216
  Transmission Date: 20140711
  Serious: Yes (Hospitalization, Other)
  Sender: FDA-Public Use
  Company Number: US-ROCHE-721619

PATIENT
  Age: 24 Year
  Sex: Female
  Weight: 44.5 kg

DRUGS (3)
  1. ACCUTANE [Suspect]
     Indication: ACNE
     Route: 065
     Dates: start: 19950930, end: 19960131
  2. ORTHO-NOVUM [Concomitant]
     Indication: CONTRACEPTION
  3. RETIN-A [Concomitant]
     Indication: ACNE

REACTIONS (12)
  - Crohn^s disease [Unknown]
  - Small intestinal obstruction [Unknown]
  - Inflammatory bowel disease [Unknown]
  - Colitis [Unknown]
  - Depression [Unknown]
  - Suicidal ideation [Unknown]
  - Mental disorder [Unknown]
  - Volvulus [Unknown]
  - Blood cholesterol increased [Unknown]
  - Blood triglycerides increased [Unknown]
  - Irritable bowel syndrome [Unknown]
  - Platelet count increased [Unknown]
